FAERS Safety Report 11917732 (Version 2)
Quarter: 2016Q1

REPORT INFORMATION
  Report Type: Spontaneous
  Country: US (occurrence: US)
  Receive Date: 20160114
  Receipt Date: 20160121
  Transmission Date: 20160526
  Serious: Yes (Death, Hospitalization)
  Sender: FDA-Public Use
  Company Number: US-FRESENIUS KABI-FK201600161

PATIENT
  Age: 80 Year
  Sex: Male

DRUGS (5)
  1. ATORVASTATIN [Suspect]
     Active Substance: ATORVASTATIN
     Indication: PRODUCT USED FOR UNKNOWN INDICATION
     Route: 065
  2. ACETAMINOPHEN (MANUFACTURER UNKNOWN) [Suspect]
     Active Substance: ACETAMINOPHEN
     Indication: PRODUCT USED FOR UNKNOWN INDICATION
     Route: 065
  3. AMIODARONE HCL (MANUFACTURER UNKNOWN) [Suspect]
     Active Substance: AMIODARONE HYDROCHLORIDE
     Indication: VENTRICULAR TACHYCARDIA
     Route: 042
  4. AMIODARONE HCL (MANUFACTURER UNKNOWN) [Suspect]
     Active Substance: AMIODARONE HYDROCHLORIDE
     Route: 042
  5. AMIODARONE HCL (MANUFACTURER UNKNOWN) [Suspect]
     Active Substance: AMIODARONE HYDROCHLORIDE
     Route: 042

REACTIONS (3)
  - Hepatitis acute [Recovering/Resolving]
  - Death [Fatal]
  - General physical health deterioration [Not Recovered/Not Resolved]
